FAERS Safety Report 12622115 (Version 1)
Quarter: 2016Q3

REPORT INFORMATION
  Report Type: Spontaneous
  Country: US (occurrence: US)
  Receive Date: 20160804
  Receipt Date: 20160804
  Transmission Date: 20161109
  Serious: No
  Sender: FDA-Public Use
  Company Number: US-ANACOR-2016ANA00178

PATIENT
  Age: 90 Year
  Sex: Female
  Weight: 61.22 kg

DRUGS (18)
  1. FORTEO [Suspect]
     Active Substance: TERIPARATIDE
     Dosage: 20 ?G, 1X/DAY
     Dates: start: 2016
  2. ADAPTOCRINE (VITAMIN C) [Concomitant]
     Dosage: 2 DOSAGE UNITS, 1X/DAY
  3. OSTEO-BII [Concomitant]
     Dosage: 3 DOSAGE UNITS, 1X/DAY
  4. ASPIRIN. [Concomitant]
     Active Substance: ASPIRIN
     Dosage: 81 MG, EVERY 48 HOURS
  5. BIO-D EMULSION [Concomitant]
     Dosage: 2 GTT, 1X/DAY
  6. VITAMIN B-6 [Concomitant]
     Active Substance: PYRIDOXINE
     Dosage: 50 MG, 1X/DAY
  7. CHONDROSAMINE [Concomitant]
     Dosage: 1 DOSAGE UNITS, 2X/DAY
  8. CA/MG-ZYME [Concomitant]
     Dosage: 5 DOSAGE UNITS, 1X/DAY
  9. NEUTROPHIL PLUS [Concomitant]
     Dosage: 3 DOSAGE UNITS, 1X/DAY
  10. PHYTOGEST CREAM [Concomitant]
     Dosage: UNK, 1X/DAY
     Route: 061
  11. EPA/DHA [Concomitant]
     Dosage: 1500 MG, 1X/DAY
  12. KAPPAREST [Concomitant]
     Dosage: 766 MG, 1X/DAY
  13. OPTIC PLUS [Concomitant]
     Dosage: 3 DOSAGE UNITS, 1X/DAY
  14. KERYDIN [Suspect]
     Active Substance: TAVABOROLE
     Indication: ONYCHOMYCOSIS
     Dosage: 5 %, 1X/DAY
     Route: 061
     Dates: start: 201604, end: 20160530
  15. PROGESTERONE CREAM [Concomitant]
     Active Substance: PROGESTERONE
     Dosage: UNK, 1X/DAY
  16. HYDROZYME [Concomitant]
     Dosage: 2 DOSAGE UNITS, UP TO 3X/DAY
  17. BIOMULTIPLUS [Concomitant]
     Dosage: 2 DOSAGE UNITS, 1X/DAY
  18. ^A LOT OF SUPPLEMENTS^ [Concomitant]

REACTIONS (6)
  - Paraesthesia [Recovered/Resolved]
  - Erythema [Recovered/Resolved]
  - Dyspnoea exertional [Recovered/Resolved]
  - Stress [Unknown]
  - Pruritus [Recovered/Resolved]
  - Rash papular [Recovered/Resolved]

NARRATIVE: CASE EVENT DATE: 2016
